FAERS Safety Report 5596897-2 (Version None)
Quarter: 2007Q4

REPORT INFORMATION
  Report Type: 
  Country: None (occurrence: None)
  Receive Date: 20071220
  Receipt Date: 20070208
  Transmission Date: 20080405
  Serious: Yes (Other)
  Sender: FDA-Public Use
  Company Number: 2211100-US-JNJFOC-20070202770

PATIENT
  Age: 24 Year
  Sex: Female
  Weight: 58.9676 kg

DRUGS (1)
  1. ORTHO TRI-CYCLEN LO [Suspect]
     Indication: CONTRACEPTION
     Dosage: 1 DISE (S), 1 IN 1 DAY, ORAL
     Route: 048
     Dates: start: 20060101

REACTIONS (3)
  - CERVIX CARCINOMA [None]
  - DRUG DOSE OMISSION [None]
  - METRORRHAGIA [None]
